FAERS Safety Report 5954014-0 (Version None)
Quarter: 2008Q4

REPORT INFORMATION
  Report Type: 
  Country: None (occurrence: None)
  Receive Date: 20081114
  Receipt Date: 20081027
  Transmission Date: 20090506
  Serious: Yes (Other)
  Sender: FDA-Public Use
  Company Number: US-PFIZER INC-2008094609

PATIENT
  Age: 46 Year
  Sex: Male

DRUGS (11)
  1. NELFINAVIR MESILATE [Suspect]
     Indication: HIV INFECTION
  2. DIDANOSINE [Suspect]
     Indication: HIV INFECTION
  3. STAVUDINE [Suspect]
     Indication: HIV INFECTION
  4. LAMIVUDINE [Suspect]
     Indication: HIV INFECTION
  5. ADEFOVIR DIPIVOXIL KIT [Suspect]
     Indication: HIV INFECTION
  6. GALENIC /LOPINAVIR/RITONAVIR/ [Suspect]
     Indication: HIV INFECTION
  7. ATAZANAVIR SULFATE [Suspect]
     Indication: HIV INFECTION
  8. RITONAVIR [Suspect]
     Indication: HIV INFECTION
  9. NEVIRAPINE [Suspect]
     Indication: HIV INFECTION
  10. HYDROXYUREA [Suspect]
     Indication: HIV INFECTION
  11. EFAVIRENZ [Suspect]
     Indication: HIV INFECTION

REACTIONS (5)
  - BUNDLE BRANCH BLOCK RIGHT [None]
  - CHEST PAIN [None]
  - EYELID PTOSIS [None]
  - LIPODYSTROPHY ACQUIRED [None]
  - PERIPHERAL SENSORY NEUROPATHY [None]
